FAERS Safety Report 6873378-7 (Version None)
Quarter: 2010Q3

REPORT INFORMATION
  Report Type: 
  Country: None (occurrence: None)
  Receive Date: 20100723
  Receipt Date: 20100715
  Transmission Date: 20110219
  Serious: Yes (Hospitalization)
  Sender: FDA-Public Use
  Company Number: ES-ABBOTT-10P-144-0655268-00

PATIENT
  Age: 61 Year
  Sex: Female

DRUGS (9)
  1. HUMIRA [Suspect]
     Indication: RHEUMATOID ARTHRITIS
     Dates: start: 20061025, end: 20090614
  2. ATORVASTATIN CALCIUM [Concomitant]
     Indication: DYSLIPIDAEMIA
  3. NOVOMIX 30 [Concomitant]
     Indication: DIABETES MELLITUS
     Dates: start: 19980101
  4. METFORMIN HCL [Concomitant]
     Indication: DIABETES MELLITUS
     Dates: start: 19980101
  5. RAMIPRIL [Concomitant]
     Indication: HYPERTENSIVE HEART DISEASE
     Dates: start: 20060928
  6. RAMIPRIL [Concomitant]
     Indication: HYPERTENSION
  7. TERTENSIF [Concomitant]
     Indication: HYPERTENSION
  8. EBASTINA [Concomitant]
     Indication: HYPERSENSITIVITY
  9. IORACEPAM [Concomitant]
     Indication: HYPERSENSITIVITY

REACTIONS (6)
  - ASTHENIA [None]
  - DIABETIC MICROANGIOPATHY [None]
  - ISCHAEMIC STROKE [None]
  - LACUNAR INFARCTION [None]
  - MOTOR DYSFUNCTION [None]
  - SENSORY LOSS [None]
